FAERS Safety Report 21402711 (Version 7)
Quarter: 2024Q2

REPORT INFORMATION
  Report Type: Spontaneous
  Country: US (occurrence: US)
  Receive Date: 20221003
  Receipt Date: 20240506
  Transmission Date: 20240716
  Serious: No
  Sender: FDA-Public Use
  Company Number: US-PFIZER INC-PV202200074433

PATIENT
  Age: 71 Year
  Sex: Female

DRUGS (3)
  1. IBRANCE [Suspect]
     Active Substance: PALBOCICLIB
     Dosage: 125 MG, 5 DAYS ON AND 2 DAYS OFF PER WEEK
  2. IBRANCE [Suspect]
     Active Substance: PALBOCICLIB
     Dosage: 75 MG, ONCE DAILY FOR 5 DAYS, THEN STOP FOR 2 DAYS. REPEAT EACH WEEK. 14 DAYS ON AND 7 DAYS OFF
     Route: 048
  3. IBRANCE [Suspect]
     Active Substance: PALBOCICLIB
     Dosage: 75 MG, ONCE DAILY FOR 5 DAYS, THEN STOP FOR 2 DAYS. REPEAT EACH WEEK. 14 DAYS ON AND 7 DAYS OFF
     Route: 048

REACTIONS (3)
  - Epistaxis [Recovered/Resolved]
  - Full blood count abnormal [Unknown]
  - Off label use [Unknown]
